FAERS Safety Report 5113842-4 (Version None)
Quarter: 2006Q3

REPORT INFORMATION
  Report Type: 
  Country: None (occurrence: None)
  Receive Date: 20060921
  Receipt Date: 20060919
  Transmission Date: 20061208
  Serious: Yes (Hospitalization)
  Sender: FDA-Public Use
  Company Number: TCI2006A03161

PATIENT
  Age: 50 Year
  Sex: Female

DRUGS (6)
  1. LEUPROLIDE ACETATE [Suspect]
     Indication: ANAEMIA
     Dosage: 1.88 MG (1.88 MG,1 IN 28 D)
     Route: 058
     Dates: start: 20060721
  2. LEUPROLIDE ACETATE [Suspect]
     Indication: MENORRHAGIA
     Dosage: 1.88 MG (1.88 MG,1 IN 28 D)
     Route: 058
     Dates: start: 20060721
  3. DUOLUTON (EUGYNON /00022701/) (TABLETS) [Suspect]
     Dosage: SEE IMAGE
     Route: 048
     Dates: start: 20060708, end: 20060717
  4. DUOLUTON (EUGYNON /00022701/) (TABLETS) [Suspect]
     Dosage: SEE IMAGE
     Route: 048
     Dates: start: 20060718, end: 20060718
  5. DUOLUTON (EUGYNON /00022701/) (TABLETS) [Suspect]
     Dosage: SEE IMAGE
     Route: 048
     Dates: start: 20060719, end: 20060720
  6. FERRUM (FERROUS FUMARATE) (CAPSULES) [Concomitant]

REACTIONS (8)
  - ABDOMINAL PAIN LOWER [None]
  - BLOOD FIBRINOGEN DECREASED [None]
  - DISSEMINATED INTRAVASCULAR COAGULATION [None]
  - FIBRIN D DIMER INCREASED [None]
  - FIBRIN DEGRADATION PRODUCTS INCREASED [None]
  - HAEMORRHAGE [None]
  - PLATELET COUNT DECREASED [None]
  - UTERINE CYST [None]
